FAERS Safety Report 4497328-6 (Version None)
Quarter: 2004Q4

REPORT INFORMATION
  Report Type: 
  Country: None (occurrence: None)
  Receive Date: 20041108
  Receipt Date: 20040715
  Transmission Date: 20050328
  Serious: Yes (Hospitalization)
  Sender: FDA-Public Use
  Company Number: USA040772727

PATIENT
  Age: 56 Year
  Sex: Female
  Weight: 74 kg

DRUGS (7)
  1. PROZAC [Suspect]
     Indication: DEPRESSION
     Dosage: 40 MG/L DAY
     Dates: end: 20040715
  2. ASPIRIN [Concomitant]
  3. ESTRATEST [Concomitant]
  4. BENZYHYDROCHLORTHIAZIDE [Concomitant]
  5. NICOTINE DERMAL PATCH (NICOTINE RESIN) [Concomitant]
  6. VIOXX [Concomitant]
  7. TRAZODONE HCL [Concomitant]

REACTIONS (2)
  - DRUG INEFFECTIVE [None]
  - MAJOR DEPRESSION [None]
